FAERS Safety Report 10634978 (Version 5)
Quarter: 2015Q1

REPORT INFORMATION
  Report Type: Report from Study
  Country: FR (occurrence: FR)
  Receive Date: 20141205
  Receipt Date: 20150213
  Transmission Date: 20150720
  Serious: Yes (Hospitalization)
  Sender: FDA-Public Use
  Company Number: FR-PFIZER INC-2014324639

PATIENT
  Age: 43 Year
  Sex: Female
  Weight: 57.5 kg

DRUGS (1)
  1. CRIZOTINIB [Suspect]
     Active Substance: CRIZOTINIB
     Indication: COLORECTAL CANCER
     Dosage: 250 MG, 2X/DAY
     Route: 048
     Dates: start: 20141020, end: 20141117

REACTIONS (1)
  - Acute kidney injury [Recovered/Resolved]

NARRATIVE: CASE EVENT DATE: 20141117
